FAERS Safety Report 16419454 (Version 2)
Quarter: 2019Q3

REPORT INFORMATION
  Report Type: Spontaneous
  Country: US (occurrence: US)
  Receive Date: 20190612
  Receipt Date: 20190712
  Transmission Date: 20191004
  Serious: No
  Sender: FDA-Public Use
  Company Number: US-GLAXOSMITHKLINE-US2019104134

PATIENT
  Sex: Female

DRUGS (1)
  1. VENTOLIN HFA [Suspect]
     Active Substance: ALBUTEROL SULFATE
     Indication: COUGH
     Dosage: UNK UNK, PRN
     Route: 048

REACTIONS (4)
  - Product complaint [Unknown]
  - Wrong technique in product usage process [Recovered/Resolved]
  - Product use in unapproved indication [Unknown]
  - Off label use [Unknown]
